FAERS Safety Report 7700042-4 (Version None)
Quarter: 2011Q3

REPORT INFORMATION
  Report Type: 
  Country: None (occurrence: None)
  Receive Date: 20110815
  Receipt Date: 20110811
  Transmission Date: 20111222
  Serious: Yes (Hospitalization)
  Sender: FDA-Public Use
  Company Number: ZYD-11-AE-183

PATIENT
  Age: 73 Year
  Sex: Female

DRUGS (5)
  1. SPIRIVA [Concomitant]
  2. ANASTRAZOLE [Suspect]
     Indication: BREAST CANCER
     Dosage: 1 MG, ONCE DAILY, ORAL
     Route: 048
     Dates: start: 20110501, end: 20110601
  3. FIORICET [Concomitant]
  4. XANAX [Concomitant]
  5. ADVAIR DISKUS 100/50 [Concomitant]

REACTIONS (4)
  - PAPILLOEDEMA [None]
  - HEADACHE [None]
  - ARTHRALGIA [None]
  - VISUAL ACUITY REDUCED [None]
